FAERS Safety Report 7879208-9 (Version None)
Quarter: 2011Q4

REPORT INFORMATION
  Report Type: 
  Country: None (occurrence: None)
  Receive Date: 20111101
  Receipt Date: 20111025
  Transmission Date: 20120403
  Serious: Yes (Death, Hospitalization, Disabling)
  Sender: FDA-Public Use
  Company Number: FI-CELGENEUS-055-50794-11061482

PATIENT
  Sex: Male

DRUGS (1)
  1. VIDAZA [Suspect]
     Dosage: 75 MILLIGRAM/SQ. METER
     Route: 058
     Dates: start: 20101220, end: 20101223

REACTIONS (4)
  - MYELODYSPLASTIC SYNDROME [None]
  - DEATH [None]
  - PULMONARY EMBOLISM [None]
  - ORGANISING PNEUMONIA [None]
